FAERS Safety Report 18273932 (Version 1)
Quarter: 2020Q3

REPORT INFORMATION
  Report Type: Spontaneous
  Country: JP (occurrence: JP)
  Receive Date: 20200916
  Receipt Date: 20200916
  Transmission Date: 20201103
  Serious: Yes (Hospitalization)
  Sender: FDA-Public Use
  Company Number: JP-TAKEDA-2020TJP019675

PATIENT

DRUGS (1)
  1. TAKELDA COMBINATION TABLETS [Suspect]
     Active Substance: ASPIRIN\LANSOPRAZOLE
     Indication: CARDIAC DISORDER
     Dosage: UNK
     Route: 048

REACTIONS (1)
  - Hospitalisation [Unknown]
